FAERS Safety Report 14411318 (Version 1)
Quarter: 2018Q1

REPORT INFORMATION
  Report Type: Spontaneous
  Country: CN (occurrence: CN)
  Receive Date: 20180119
  Receipt Date: 20180119
  Transmission Date: 20180509
  Serious: Yes (Other)
  Sender: FDA-Public Use
  Company Number: CN-BRISTOL-MYERS SQUIBB COMPANY-BMS-2018-003897

PATIENT
  Age: 35 Year
  Sex: Female

DRUGS (10)
  1. DYDROGESTERONE [Suspect]
     Active Substance: DYDROGESTERONE
     Indication: PRODUCT USED FOR UNKNOWN INDICATION
     Dosage: 1 DF, BID
     Route: 048
  2. CRINONE [Suspect]
     Active Substance: PROGESTERONE
     Indication: PRODUCT USED FOR UNKNOWN INDICATION
     Dosage: UNK
     Route: 065
     Dates: start: 2017
  3. DIPHERELINE [Suspect]
     Active Substance: TRIPTORELIN ACETATE
     Indication: OVULATION INDUCTION
     Dosage: 1 DF, UNK
     Route: 065
     Dates: start: 2017
  4. DYDROGESTERONE [Suspect]
     Active Substance: DYDROGESTERONE
     Indication: PRODUCT USED FOR UNKNOWN INDICATION
     Dosage: 1 DF, BID
     Route: 048
  5. BROMOCRIPTINE [Suspect]
     Active Substance: BROMOCRIPTINE
     Indication: PRODUCT USED FOR UNKNOWN INDICATION
     Dosage: UNK
     Route: 065
     Dates: start: 2017
  6. PREDNISONE. [Suspect]
     Active Substance: PREDNISONE
     Indication: PRODUCT USED FOR UNKNOWN INDICATION
     Dosage: UNK
     Route: 065
     Dates: start: 2017
  7. METFORMIN HYDROCHLORIDE. [Suspect]
     Active Substance: METFORMIN HYDROCHLORIDE
     Indication: PRODUCT USED FOR UNKNOWN INDICATION
     Dosage: UNK
     Route: 065
     Dates: start: 2017
  8. MENOTROPHIN [Suspect]
     Active Substance: MENOTROPINS
     Indication: OVULATION INDUCTION
     Dosage: 3 DF, QD
     Route: 065
     Dates: start: 2017
  9. LUVERIS [Suspect]
     Active Substance: LUTROPIN ALFA
     Indication: OVULATION INDUCTION
     Dosage: UNK
     Route: 058
     Dates: start: 2017
  10. ASPIRIN                            /00002701/ [Suspect]
     Active Substance: ASPIRIN
     Indication: PRODUCT USED FOR UNKNOWN INDICATION
     Dosage: 50 MG, QD
     Route: 048
     Dates: start: 2017

REACTIONS (8)
  - Fibrin D dimer increased [Recovered/Resolved]
  - Frequent bowel movements [Recovered/Resolved]
  - Regurgitation [Recovered/Resolved]
  - Maternal exposure during pregnancy [Unknown]
  - Hunger [Recovered/Resolved]
  - Abdominal pain [Recovered/Resolved]
  - Ascites [Recovered/Resolved]
  - Gastrointestinal pain [Recovered/Resolved]

NARRATIVE: CASE EVENT DATE: 2017
